FAERS Safety Report 8287599-2 (Version None)
Quarter: 2012Q2

REPORT INFORMATION
  Report Type: 
  Country: None (occurrence: None)
  Receive Date: 20120416
  Receipt Date: 20120409
  Transmission Date: 20120825
  Serious: Yes (Hospitalization, Other)
  Sender: FDA-Public Use
  Company Number: PHHY2012BR030920

PATIENT
  Sex: Male
  Weight: 96 kg

DRUGS (3)
  1. TRILEPTAL [Suspect]
     Indication: CONVULSION
     Dosage: 1 TABLET IN THE MORNING AND 1 TABLET AT NIGHT
     Route: 048
  2. TRILEPTAL [Suspect]
     Dosage: 1 TABLET IN THE MORNING AND HALF TABLET AT NIGHT
     Route: 048
  3. TRILEPTAL [Suspect]
     Dosage: HALF TABLET IN THE MORNING AND HALF TABLET AT NIGHT

REACTIONS (14)
  - ABNORMAL BEHAVIOUR [None]
  - ADENOIDAL DISORDER [None]
  - PSYCHIATRIC SYMPTOM [None]
  - DYSPNOEA [None]
  - APNOEA [None]
  - STUPOR [None]
  - DEPRESSION [None]
  - NASAL SEPTUM DEVIATION [None]
  - BRAIN HYPOXIA [None]
  - HYPERHIDROSIS [None]
  - CONFUSIONAL STATE [None]
  - DISORIENTATION [None]
  - FEELING ABNORMAL [None]
  - BRADYPHRENIA [None]
